FAERS Safety Report 9660156 (Version 6)
Quarter: 2014Q2

REPORT INFORMATION
  Report Type: Spontaneous
  Country: JP (occurrence: JP)
  Receive Date: 20131031
  Receipt Date: 20140401
  Transmission Date: 20141212
  Serious: Yes (Death, Hospitalization, Other)
  Sender: FDA-Public Use
  Company Number: JP-PFIZER INC-2013281430

PATIENT
  Age: 68 Year
  Sex: Male
  Weight: 63.6 kg

DRUGS (4)
  1. SUTENT [Suspect]
     Indication: GASTROINTESTINAL STROMAL TUMOUR
     Dosage: 50 MG, 1X/DAY
     Route: 048
     Dates: start: 20110713, end: 20110726
  2. SUTENT [Suspect]
     Dosage: 37.5 MG, 1X/DAY
     Route: 048
     Dates: start: 20110727, end: 20120718
  3. SUTENT [Suspect]
     Dosage: 25 MG, 1X/DAY
     Route: 048
     Dates: start: 20130822, end: 20130911
  4. SUTENT [Suspect]
     Dosage: 25 MG, 1X/DAY
     Route: 048
     Dates: start: 20130926, end: 20130927

REACTIONS (5)
  - Disease progression [Fatal]
  - Gastrointestinal stromal tumour [Fatal]
  - Tumour lysis syndrome [Not Recovered/Not Resolved]
  - Cholangitis [Recovering/Resolving]
  - Disseminated intravascular coagulation [Recovering/Resolving]
